FAERS Safety Report 8923895 (Version 2)
Quarter: 2013Q1

REPORT INFORMATION
  Report Type: Spontaneous
  Country: US (occurrence: US)
  Receive Date: 20121127
  Receipt Date: 20130115
  Transmission Date: 20140127
  Serious: Yes (Death)
  Sender: FDA-Public Use
  Company Number: US-GENZYME-CAMP-1002578

PATIENT
  Age: 76 Year
  Sex: Male

DRUGS (12)
  1. CAMPATH [Suspect]
     Indication: LYMPHOMA
     Dosage: 30 MG, UNK
     Route: 058
     Dates: start: 20100215, end: 20120514
  2. CAMPATH [Suspect]
     Dosage: 3 MG, QD
     Route: 058
     Dates: start: 20121127, end: 20121127
  3. CAMPATH [Suspect]
     Dosage: 10 MG, QD
     Route: 058
     Dates: start: 20121129, end: 20121129
  4. CAMPATH [Suspect]
     Dosage: 30 MG, QD
     Route: 058
     Dates: start: 20121201, end: 20121201
  5. CAMPATH [Suspect]
     Dosage: 30 MG, QD
     Route: 058
     Dates: start: 20121203, end: 20121203
  6. CAMPATH [Suspect]
     Dosage: 30 MG, QD
     Route: 058
     Dates: start: 20121205, end: 20121205
  7. CAMPATH [Suspect]
     Dosage: 30 MG, QD
     Route: 058
     Dates: start: 20121207, end: 20121207
  8. CAMPATH [Suspect]
  9. CORTICOSTEROID NOS [Concomitant]
     Indication: LYMPHOMA
     Dosage: UNK
     Route: 065
  10. DECADRON [Concomitant]
     Indication: PRODUCT USED FOR UNKNOWN INDICATION
     Dosage: UNK
     Route: 065
  11. TYLENOL [Concomitant]
     Indication: PREMEDICATION
     Dosage: UNK
     Route: 065
  12. BENADRYL [Concomitant]
     Indication: PREMEDICATION
     Dosage: UNK
     Route: 065

REACTIONS (2)
  - Lymphoma [Fatal]
  - Renal failure [Fatal]
